FAERS Safety Report 5178957-3 (Version None)
Quarter: 2006Q4

REPORT INFORMATION
  Report Type: 
  Country: None (occurrence: None)
  Receive Date: 20061214
  Receipt Date: 20061214
  Transmission Date: 20070319
  Serious: Yes (Death)
  Sender: FDA-Public Use
  Company Number: None

PATIENT
  Sex: Male
  Weight: 79.8331 kg

DRUGS (2)
  1. AVASTIN [Suspect]
     Indication: CHOROIDAL NEOVASCULARISATION
     Dosage: 1.25 MG / 0.05ML    INTRAOCULAR
     Route: 031
     Dates: start: 20060609, end: 20060609
  2. AVASTIN [Suspect]
     Indication: CHOROIDAL NEOVASCULARISATION
     Dosage: 1.25 MG / 0.05ML     INTRAOCULA
     Route: 031
     Dates: start: 20060726, end: 20060726

REACTIONS (1)
  - PNEUMONIA [None]
